FAERS Safety Report 9373809 (Version 1)
Quarter: 2013Q2

REPORT INFORMATION
  Report Type: Spontaneous
  Country: DE (occurrence: DE)
  Receive Date: 20130628
  Receipt Date: 20130628
  Transmission Date: 20140414
  Serious: Yes (Other)
  Sender: FDA-Public Use
  Company Number: GXKR2013DE002207

PATIENT
  Sex: 0

DRUGS (5)
  1. SIMVASTATIN [Suspect]
     Indication: HYPERCHOLESTEROLAEMIA
     Dosage: 20 MG, UNK
     Route: 048
     Dates: start: 2012, end: 20130325
  2. DOPADURA C [Concomitant]
     Indication: PARKINSONISM
     Dosage: 600 MG, UNK
     Route: 048
     Dates: start: 1994
  3. AMANTADINE SULFATE [Concomitant]
     Indication: PARKINSONISM
     Dosage: 100 MG, UNK
     Route: 048
     Dates: end: 20130328
  4. TASMAR [Concomitant]
     Indication: PARKINSONISM
     Dosage: 200 MG, UNK
     Route: 048
  5. RALNEA [Concomitant]
     Indication: PARKINSONISM
     Dosage: 8 MG, UNK
     Route: 048
     Dates: end: 20130406

REACTIONS (2)
  - Paraparesis [Recovering/Resolving]
  - Myopathy [Recovering/Resolving]
